FAERS Safety Report 17750432 (Version 1)
Quarter: 2020Q2

REPORT INFORMATION
  Report Type: Spontaneous
  Country: US (occurrence: US)
  Receive Date: 20200505
  Receipt Date: 20200505
  Transmission Date: 20200714
  Serious: Yes (Other)
  Sender: FDA-Public Use
  Company Number: None

PATIENT
  Age: 50 Year
  Sex: Female
  Weight: 63 kg

DRUGS (1)
  1. CIPROFLOXACIN. [Suspect]
     Active Substance: CIPROFLOXACIN
     Indication: KIDNEY INFECTION
     Dosage: ?          QUANTITY:10 TABLET(S);?
     Route: 048
     Dates: start: 20200428, end: 20200503

REACTIONS (12)
  - Asthenia [None]
  - Peripheral swelling [None]
  - Skin laceration [None]
  - Tendon pain [None]
  - Pain in extremity [None]
  - Back pain [None]
  - Arthralgia [None]
  - Pruritus [None]
  - Tension [None]
  - Neck pain [None]
  - Drug ineffective [None]
  - Pain [None]

NARRATIVE: CASE EVENT DATE: 20200428
